FAERS Safety Report 4482475-5 (Version None)
Quarter: 2004Q4

REPORT INFORMATION
  Report Type: 
  Country: None (occurrence: None)
  Receive Date: 20041022
  Receipt Date: 20041012
  Transmission Date: 20050328
  Serious: Yes (Hospitalization, Congenital Anomaly)
  Sender: FDA-Public Use
  Company Number: NL-GLAXOSMITHKLINE-B0348597A

PATIENT
  Sex: Male

DRUGS (4)
  1. PAROXETINE HYDROCHLORIDE [Suspect]
     Indication: DRUG USE FOR UNKNOWN INDICATION
     Dosage: 20MG UNKNOWN
  2. FRAXIPARINE [Concomitant]
     Dosage: 9500IUML UNKNOWN
  3. PREDNISONE [Concomitant]
     Dosage: 5MG UNKNOWN
  4. FOLIC ACID [Concomitant]
     Dosage: .5MG UNKNOWN

REACTIONS (9)
  - BLEPHAROPHIMOSIS [None]
  - CONGENITAL HYPEREXTENSION OF SPINE [None]
  - DRUG EXPOSURE DURING PREGNANCY [None]
  - EAR MALFORMATION [None]
  - FACIAL DYSMORPHISM [None]
  - HYPERTELORISM OF ORBIT [None]
  - HYPERTONIA [None]
  - IRRITABILITY [None]
  - NECK DEFORMITY [None]
